FAERS Safety Report 5665522-4 (Version None)
Quarter: 2008Q1

REPORT INFORMATION
  Report Type: 
  Country: None (occurrence: None)
  Receive Date: 20080314
  Receipt Date: 20071205
  Transmission Date: 20080703
  Serious: No
  Sender: FDA-Public Use
  Company Number: US-ABBOTT-07P-163-0428288-00

PATIENT
  Sex: Female

DRUGS (3)
  1. HUMIRA [Suspect]
     Indication: CROHN'S DISEASE
     Route: 058
     Dates: start: 20071110, end: 20071110
  2. HUMIRA [Suspect]
     Route: 058
     Dates: start: 20071124, end: 20071124
  3. HUMIRA [Suspect]
     Route: 058

REACTIONS (1)
  - FATIGUE [None]
